FAERS Safety Report 9365001 (Version 5)
Quarter: 2014Q1

REPORT INFORMATION
  Report Type: Spontaneous
  Country: US (occurrence: US)
  Receive Date: 20130624
  Receipt Date: 20140210
  Transmission Date: 20141002
  Serious: Yes (Other)
  Sender: FDA-Public Use
  Company Number: US-PFIZER INC-2013187581

PATIENT
  Age: 56 Year
  Sex: Male
  Weight: 100 kg

DRUGS (14)
  1. LYRICA [Suspect]
     Indication: DIABETIC NEUROPATHY
     Dosage: UNK
     Route: 048
  2. LYRICA [Suspect]
     Indication: PAIN IN EXTREMITY
     Dosage: 300 MG, 2X/DAY (300MG TWICE DAILY)
     Route: 048
  3. LYRICA [Suspect]
     Indication: NEUROPATHY PERIPHERAL
  4. LYRICA [Suspect]
     Indication: BACK PAIN
  5. LYRICA [Suspect]
     Indication: PAIN
  6. CYMBALTA [Concomitant]
     Indication: PAIN
     Dosage: 60 MG, DAILY
  7. LISINOPRIL [Concomitant]
     Dosage: 20 MG, UNK
  8. KLOR-CON [Concomitant]
     Dosage: 20 MG, UNK
  9. FUROSEMIDE [Concomitant]
     Dosage: UNK
  10. SYMBICORT [Concomitant]
     Indication: DYSPNOEA
     Dosage: UNK INHALER
  11. SPIRIVA [Concomitant]
     Dosage: UNK
  12. CYCLOBENZAPRINE [Concomitant]
     Indication: PAIN
     Dosage: 10 MG, (3X DAILY, PRN)
  13. LASIX [Concomitant]
     Dosage: 40 MG, 1X/DAY (20MG 2TABS 1X DAILY)
  14. TRAZODONE [Concomitant]
     Dosage: 50MG 1-2 TABS 1X DAILY AS NEEDED

REACTIONS (9)
  - Drug withdrawal syndrome [Recovered/Resolved]
  - Shock [Unknown]
  - Aphagia [Unknown]
  - Dysstasia [Unknown]
  - Nausea [Unknown]
  - Discomfort [Unknown]
  - Pain [Unknown]
  - Gait disturbance [Unknown]
  - Limb discomfort [Unknown]
